FAERS Safety Report 4664733-4 (Version None)
Quarter: 2005Q2

REPORT INFORMATION
  Report Type: 
  Country: None (occurrence: None)
  Receive Date: 20050516
  Receipt Date: 20050504
  Transmission Date: 20051028
  Serious: Yes (Other)
  Sender: FDA-Public Use
  Company Number: HQWYE554605MAY05

PATIENT
  Sex: Female

DRUGS (1)
  1. PANTOZOL (PANTOPRAZOLE, INJECTION) [Suspect]
     Dosage: INFUSION

REACTIONS (1)
  - OPTIC ATROPHY [None]
